FAERS Safety Report 12140435 (Version 1)
Quarter: 2016Q1

REPORT INFORMATION
  Report Type: Spontaneous
  Country: US (occurrence: US)
  Receive Date: 20160303
  Receipt Date: 20160303
  Transmission Date: 20160526
  Serious: No
  Sender: FDA-Public Use
  Company Number: US-PFIZER INC-2016095569

PATIENT
  Age: 28 Year
  Sex: Female

DRUGS (2)
  1. MONISTAT [Suspect]
     Active Substance: MICONAZOLE NITRATE
     Dosage: UNK
  2. DIFLUCAN [Suspect]
     Active Substance: FLUCONAZOLE
     Indication: FUNGAL INFECTION
     Dosage: 100 MG, UNK (7 DAYS OF DIFLUCAN 100MG)

REACTIONS (1)
  - Drug ineffective [Unknown]
